FAERS Safety Report 18350323 (Version 1)
Quarter: 2020Q4

REPORT INFORMATION
  Report Type: Spontaneous
  Country: JP (occurrence: JP)
  Receive Date: 20201006
  Receipt Date: 20201006
  Transmission Date: 20210114
  Serious: Yes (Hospitalization)
  Sender: FDA-Public Use
  Company Number: JP-CIRCASSIA PHARMACEUTICALS INC-2020JP005816

PATIENT

DRUGS (2)
  1. ALVESCO [Concomitant]
     Active Substance: CICLESONIDE
     Indication: PRODUCT USED FOR UNKNOWN INDICATION
     Dosage: 200 ?G/DAY, DIVIDED BID
     Route: 065
     Dates: start: 201801
  2. EKLIRA [Suspect]
     Active Substance: ACLIDINIUM BROMIDE
     Indication: ALLERGIC BRONCHOPULMONARY MYCOSIS
     Dosage: 800 UG, DAILY
     Route: 055
     Dates: start: 201709

REACTIONS (2)
  - Device failure [Unknown]
  - Pneumonia [Recovered/Resolved]

NARRATIVE: CASE EVENT DATE: 20200823
